FAERS Safety Report 13478323 (Version 1)
Quarter: 2017Q2

REPORT INFORMATION
  Report Type: Spontaneous
  Country: US (occurrence: US)
  Receive Date: 20170425
  Receipt Date: 20170425
  Transmission Date: 20170830
  Serious: Yes (Death)
  Sender: FDA-Public Use
  Company Number: None

PATIENT
  Age: 76 Year
  Sex: Female

DRUGS (16)
  1. NYSTAT/TRIAM [Concomitant]
  2. FAMOTIDINE. [Concomitant]
     Active Substance: FAMOTIDINE
  3. CLOTRIM/BETA [Concomitant]
  4. DOCUSATE [Concomitant]
     Active Substance: DOCUSATE
  5. CLONAZEPAM. [Concomitant]
     Active Substance: CLONAZEPAM
  6. BUT/APAP [Concomitant]
  7. TARCEVA [Suspect]
     Active Substance: ERLOTINIB HYDROCHLORIDE
     Indication: LUNG CARCINOMA CELL TYPE UNSPECIFIED STAGE 0
     Dosage: 1 TABLET DAILLY ORAL
     Route: 048
     Dates: start: 20170223
  8. GENERLAC [Concomitant]
     Active Substance: LACTULOSE
  9. PROCTO-MED [Concomitant]
  10. ANUCORT-HC [Concomitant]
     Active Substance: HYDROCORTISONE ACETATE
  11. LOSARTAN/HCT [Concomitant]
     Active Substance: HYDROCHLOROTHIAZIDE\LOSARTAN POTASSIUM
  12. DEXAMETHASON [Concomitant]
     Active Substance: DEXAMETHASONE
  13. JUVEN REVIGO POW [Concomitant]
  14. ANALPRAM-HC [Concomitant]
  15. MEGESTROL [Concomitant]
     Active Substance: MEGESTROL
  16. PANTOPRAZOLE [Concomitant]
     Active Substance: PANTOPRAZOLE

REACTIONS (1)
  - Malaise [None]

NARRATIVE: CASE EVENT DATE: 20170417
